FAERS Safety Report 4778876-8 (Version None)
Quarter: 2005Q3

REPORT INFORMATION
  Report Type: 
  Country: None (occurrence: None)
  Receive Date: 20050922
  Receipt Date: 20050906
  Transmission Date: 20060218
  Serious: Yes (Hospitalization, Other)
  Sender: FDA-Public Use
  Company Number: FACT0500549

PATIENT
  Age: 47 Year
  Sex: Female
  Weight: 68 kg

DRUGS (6)
  1. FACTIVE [Suspect]
     Indication: RESPIRATORY TRACT INFECTION BACTERIAL
     Dosage: 320 QD ORAL
     Route: 048
     Dates: start: 20050805, end: 20050806
  2. DIOVAN HCT [Concomitant]
  3. LASIX [Concomitant]
  4. KCL (POTASSIUM CHLORIDE) [Concomitant]
  5. ROBITUSSIN A-C/OLD FORM/ (CODEINE PHOSPHATE, GUAIFENESIN, PHENIRAMINE [Concomitant]
  6. DYNACIRC [Concomitant]

REACTIONS (16)
  - ACUTE PRERENAL FAILURE [None]
  - ASTHENIA [None]
  - BACTERAEMIA [None]
  - DERMATITIS [None]
  - DIABETES MELLITUS NON-INSULIN-DEPENDENT [None]
  - DRUG ERUPTION [None]
  - HYPOVOLAEMIA [None]
  - OEDEMA PERIPHERAL [None]
  - PAIN IN EXTREMITY [None]
  - PYREXIA [None]
  - RASH ERYTHEMATOUS [None]
  - RASH PRURITIC [None]
  - SKIN EXFOLIATION [None]
  - SKIN INFLAMMATION [None]
  - SKIN OEDEMA [None]
  - SWELLING FACE [None]
